FAERS Safety Report 5274111-5 (Version None)
Quarter: 2007Q1

REPORT INFORMATION
  Report Type: 
  Country: None (occurrence: None)
  Receive Date: 20070323
  Receipt Date: 20070313
  Transmission Date: 20070707
  Serious: Yes (Other)
  Sender: FDA-Public Use
  Company Number: US-ROCHE-487102

PATIENT
  Age: 24 Year
  Sex: Female
  Weight: 62.6 kg

DRUGS (1)
  1. ACCUTANE [Suspect]
     Indication: DRUG USE FOR UNKNOWN INDICATION
     Dosage: 40MG IN THE MORNING AND 20MG IN THE EVENING
     Route: 048
     Dates: start: 20070118, end: 20070226

REACTIONS (2)
  - DEPRESSION [None]
  - SUICIDAL IDEATION [None]
